FAERS Safety Report 9803378 (Version 3)
Quarter: 2014Q2

REPORT INFORMATION
  Report Type: Report from Study
  Country: JP (occurrence: JP)
  Receive Date: 20140108
  Receipt Date: 20140523
  Transmission Date: 20141212
  Serious: Yes (Other)
  Sender: FDA-Public Use
  Company Number: JP-OTSUKA-JP-2014-10043

PATIENT
  Age: 83 Year
  Sex: Male
  Weight: 75.4 kg

DRUGS (16)
  1. SAMSCA [Suspect]
     Indication: OEDEMA DUE TO CARDIAC DISEASE
     Dosage: 7.5 MG MILLIGRAM(S), QAM
     Route: 048
     Dates: start: 20131101, end: 20131116
  2. SAMSCA [Suspect]
     Dosage: 3.75 MG MILLIGRAM(S), QAM
     Route: 048
     Dates: start: 20131117, end: 20131121
  3. DIART [Suspect]
     Indication: NEPHROTIC SYNDROME
     Dosage: 60 MG MILLIGRAM(S), DAILY DOSE
     Route: 048
  4. PERDIPINE [Concomitant]
     Dosage: 24 MG MILLIGRAM(S), DAILY DOSE
     Route: 042
     Dates: end: 20131109
  5. BAYASPIRIN [Concomitant]
     Dosage: 100 MG MILLIGRAM(S), DAILY DOSE
     Route: 048
  6. AZILVA [Concomitant]
     Dosage: 40 MG MILLIGRAM(S), DAILY DOSE
     Route: 048
  7. CALBLOCK [Concomitant]
     Dosage: 16 MG MILLIGRAM(S), DAILY DOSE
     Route: 048
  8. CARDENALIN [Concomitant]
     Dosage: 16 MG MILLIGRAM(S), DAILY DOSE
     Route: 048
  9. MAINTATE [Concomitant]
     Dosage: 5 MG MILLIGRAM(S), DAILY DOSE
     Route: 048
  10. LIVALO [Concomitant]
     Dosage: 4 MG MILLIGRAM(S), DAILY DOSE
     Route: 048
  11. TAKEPRON [Concomitant]
     Dosage: 30 MG MILLIGRAM(S), DAILY DOSE
     Route: 048
  12. ALDOMET [Concomitant]
     Dosage: 250 MG MILLIGRAM(S), DAILY DOSE
     Route: 048
  13. PREDONINE [Concomitant]
     Dosage: 30 MG MILLIGRAM(S), DAILY DOSE
     Route: 048
  14. WARFARIN K [Concomitant]
     Dosage: 1 MG MILLIGRAM(S), DAILY DOSE
     Route: 048
  15. ATELEC [Concomitant]
     Dosage: 20 MG MILLIGRAM(S), DAILY DOSE
     Route: 048
  16. NATRIX [Concomitant]
     Indication: CARDIAC FAILURE
     Dosage: 1 MG MILLIGRAM(S), DAILY DOSE
     Route: 048
     Dates: start: 20131103

REACTIONS (3)
  - Blood urea increased [Recovered/Resolved]
  - Blood creatinine increased [Recovered/Resolved]
  - Hyperuricaemia [Recovered/Resolved]
